FAERS Safety Report 6577696-1 (Version None)
Quarter: 2010Q1

REPORT INFORMATION
  Report Type: 
  Country: None (occurrence: None)
  Receive Date: 20100211
  Receipt Date: 20100208
  Transmission Date: 20100710
  Serious: Yes (Life-Threatening, Hospitalization)
  Sender: FDA-Public Use
  Company Number: PHHY2010FR07178

PATIENT
  Sex: Female

DRUGS (5)
  1. VOLTAREN [Suspect]
     Indication: BACK PAIN
     Dosage: UNK
     Dates: end: 20091013
  2. IBUPROFENE [Concomitant]
     Indication: PAIN
     Dosage: UNK
     Dates: end: 20091013
  3. LEXOMIL [Concomitant]
  4. NOCTRAN [Concomitant]
  5. CODOLIPRANE [Concomitant]

REACTIONS (6)
  - ABDOMINAL PAIN [None]
  - GASTRIC ULCER [None]
  - GASTRODUODENAL ULCER [None]
  - HAEMOGLOBIN DECREASED [None]
  - IRON DEFICIENCY ANAEMIA [None]
  - WEIGHT DECREASED [None]
